FAERS Safety Report 4570598-1 (Version None)
Quarter: 2005Q1

REPORT INFORMATION
  Report Type: 
  Country: None (occurrence: None)
  Receive Date: 20050202
  Receipt Date: 20050202
  Transmission Date: 20050727
  Serious: Yes (Life-Threatening, Hospitalization)
  Sender: FDA-Public Use
  Company Number: None

PATIENT
  Sex: Male
  Weight: 12.5 kg

DRUGS (8)
  1. CYCLOPHOSPHAMIDE [Suspect]
     Indication: NEUROBLASTOMA
     Dosage: 1200 MG   OVER 6 HRS   INTRAVENOU
     Route: 042
     Dates: start: 20041228, end: 20041229
  2. DOXORUBICIN   2MG / ML   MAYNEPHARMCANADA [Suspect]
     Indication: NEUROBLASTOMA
     Dosage: 14 MG   OVER 72 HRS   INTRAVENOU
     Route: 042
     Dates: start: 20041228, end: 20041230
  3. VINCRISTINE [Concomitant]
  4. ZOFRAN [Concomitant]
  5. ZANTAC [Concomitant]
  6. SEPTRA [Concomitant]
  7. DECADRON [Concomitant]
  8. HEPARIN [Concomitant]

REACTIONS (1)
  - HYPERKALAEMIA [None]
